FAERS Safety Report 23059676 (Version 2)
Quarter: 2023Q4

REPORT INFORMATION
  Report Type: Report from Study
  Country: FI (occurrence: FI)
  Receive Date: 20231012
  Receipt Date: 20231024
  Transmission Date: 20240110
  Serious: Yes (Hospitalization)
  Sender: FDA-Public Use
  Company Number: FI-Eisai Medical Research-EC-2023-145097

PATIENT
  Age: 72 Year
  Sex: Male
  Weight: 82 kg

DRUGS (19)
  1. LENVATINIB [Suspect]
     Active Substance: LENVATINIB
     Indication: Clear cell renal cell carcinoma
     Dosage: STARTING DOSE AT 20 MG, FLUCTUATED DOSAGE
     Route: 048
     Dates: start: 20230515, end: 20230717
  2. PEMBROLIZUMAB [Suspect]
     Active Substance: PEMBROLIZUMAB
     Indication: Clear cell renal cell carcinoma
     Route: 041
     Dates: start: 20230515, end: 20230626
  3. BELZUTIFAN [Suspect]
     Active Substance: BELZUTIFAN
     Indication: Clear cell renal cell carcinoma
     Dosage: STARTING DOSE AT 120 MG, FLUCTUATED DOSAGE
     Route: 048
     Dates: start: 20230515, end: 20230717
  4. ASPIRIN [Concomitant]
     Active Substance: ASPIRIN
     Dates: start: 20211212, end: 20230719
  5. TAMSULOSIN HYDROCHLORIDE [Concomitant]
     Active Substance: TAMSULOSIN HYDROCHLORIDE
     Dates: start: 20221102, end: 20230719
  6. POLYETHYLENE GLYCOLS [Concomitant]
     Active Substance: POLYETHYLENE GLYCOLS
     Dates: start: 20221110, end: 20230717
  7. ISOSORBIDE DINITRATE [Concomitant]
     Active Substance: ISOSORBIDE DINITRATE
     Dates: start: 20230223
  8. KETOPROFEN [Concomitant]
     Active Substance: KETOPROFEN
     Dates: start: 20210918, end: 20230718
  9. ACETAMINOPHEN [Concomitant]
     Active Substance: ACETAMINOPHEN
     Dates: start: 20221103, end: 20230718
  10. HYDROCORTISONE ACETATE [Concomitant]
     Active Substance: HYDROCORTISONE ACETATE
     Dates: start: 20230529, end: 20230726
  11. METOCLOPRAMIDE [Concomitant]
     Active Substance: METOCLOPRAMIDE
     Dates: start: 20230602
  12. ONDANSETRON [Concomitant]
     Active Substance: ONDANSETRON
     Dates: start: 20230714
  13. CARBIMAZOLE [Concomitant]
     Active Substance: CARBIMAZOLE
     Dates: start: 20230714, end: 20230717
  14. LACTULOSE [Concomitant]
     Active Substance: LACTULOSE
     Dates: start: 20230519, end: 20230727
  15. OXYCODONE [Concomitant]
     Active Substance: OXYCODONE
     Dates: start: 20230529
  16. RAMIPRIL [Concomitant]
     Active Substance: RAMIPRIL
     Dates: start: 20200214, end: 20230529
  17. ROSUVASTATIN [Concomitant]
     Active Substance: ROSUVASTATIN
     Dates: start: 20221102, end: 20230719
  18. EZETIMIBE [Concomitant]
     Active Substance: EZETIMIBE
     Dates: start: 20200213, end: 20230719
  19. GABAPENTIN [Concomitant]
     Active Substance: GABAPENTIN
     Dates: start: 20221110, end: 20230719

REACTIONS (2)
  - Cardiac failure [Not Recovered/Not Resolved]
  - Immune-mediated hepatitis [Recovered/Resolved]

NARRATIVE: CASE EVENT DATE: 20230717
